FAERS Safety Report 13499744 (Version 2)
Quarter: 2017Q2

REPORT INFORMATION
  Report Type: Spontaneous
  Country: US (occurrence: US)
  Receive Date: 20170501
  Receipt Date: 20170511
  Transmission Date: 20170830
  Serious: Yes (Other)
  Sender: FDA-Public Use
  Company Number: US-TEVA-764134USA

PATIENT
  Age: 30 Year
  Sex: Male

DRUGS (4)
  1. FELBAMATE. [Concomitant]
     Active Substance: FELBAMATE
     Indication: EPILEPSY
     Route: 065
  2. LAMOTRIGINE. [Suspect]
     Active Substance: LAMOTRIGINE
     Dosage: 400 MILLIGRAM DAILY;
     Route: 065
  3. LAMOTRIGINE. [Suspect]
     Active Substance: LAMOTRIGINE
     Indication: EPILEPSY
     Dosage: 375 MILLIGRAM DAILY;
     Route: 065
  4. LAMOTRIGINE. [Suspect]
     Active Substance: LAMOTRIGINE
     Dosage: 450 MILLIGRAM DAILY;
     Route: 065

REACTIONS (3)
  - Toxicity to various agents [Unknown]
  - Lethargy [Unknown]
  - Seizure [Unknown]
